FAERS Safety Report 6669449-0 (Version None)
Quarter: 2010Q2

REPORT INFORMATION
  Report Type: 
  Country: None (occurrence: None)
  Receive Date: 20100406
  Receipt Date: 20100325
  Transmission Date: 20101027
  Serious: Yes (Other)
  Sender: FDA-Public Use
  Company Number: PHHY2010MX08082

PATIENT
  Sex: Female

DRUGS (5)
  1. ZELMAC [Suspect]
     Indication: IRRITABLE BOWEL SYNDROME
     Dosage: 1/2 TABLET PER DAY
     Route: 048
     Dates: start: 20091218
  2. ZELMAC [Suspect]
     Dosage: 2 TABLETS PER DAY
     Dates: start: 20100101, end: 20100129
  3. AGIOLAX [Concomitant]
  4. ALEVIAN DUO [Concomitant]
  5. PINAVERIUM BROMIDE [Concomitant]
     Dosage: UNK

REACTIONS (16)
  - ABDOMINAL PAIN [None]
  - BACK PAIN [None]
  - BLOOD PRESSURE INCREASED [None]
  - COLITIS ULCERATIVE [None]
  - CONSTIPATION [None]
  - CROHN'S DISEASE [None]
  - DISCOMFORT [None]
  - DIVERTICULITIS [None]
  - DIZZINESS [None]
  - GASTRITIS [None]
  - GASTROINTESTINAL MOTILITY DISORDER [None]
  - HEADACHE [None]
  - NAUSEA [None]
  - NEPHROLITHIASIS [None]
  - PYELONEPHRITIS [None]
  - TACHYCARDIA [None]
